FAERS Safety Report 20608358 (Version 1)
Quarter: 2022Q1

REPORT INFORMATION
  Report Type: Spontaneous
  Country: JP (occurrence: JP)
  Receive Date: 20220317
  Receipt Date: 20220317
  Transmission Date: 20220424
  Serious: Yes (Hospitalization)
  Sender: FDA-Public Use
  Company Number: JP-PFIZER INC-202101864785

PATIENT
  Age: 59 Year
  Sex: Male
  Weight: 54.4 kg

DRUGS (11)
  1. INLYTA [Suspect]
     Active Substance: AXITINIB
     Indication: Metastatic renal cell carcinoma
     Dosage: 10 MG, DAILY
     Dates: start: 20200817, end: 20201204
  2. INLYTA [Suspect]
     Active Substance: AXITINIB
     Dosage: 10 MG, DAILY
     Dates: start: 20201211, end: 20201213
  3. INLYTA [Suspect]
     Active Substance: AXITINIB
     Dosage: 8 MG, DAILY
     Dates: start: 20201214, end: 20210101
  4. INLYTA [Suspect]
     Active Substance: AXITINIB
     Dosage: 6 MG, DAILY
     Dates: start: 20210114, end: 20210121
  5. INLYTA [Suspect]
     Active Substance: AXITINIB
     Dosage: 6 MG, DAILY
     Dates: start: 20210122, end: 20210620
  6. BAVENCIO [Suspect]
     Active Substance: AVELUMAB
     Indication: Metastatic renal cell carcinoma
     Dosage: 10 MG/KG
     Dates: start: 20200817, end: 20211204
  7. BAVENCIO [Suspect]
     Active Substance: AVELUMAB
     Dosage: 10 MG/KG
     Dates: start: 20210122, end: 20210620
  8. CILNIDIPINE [Suspect]
     Active Substance: CILNIDIPINE
     Dosage: UNK
  9. AMLODIPINE BESYLATE\IRBESARTAN [Concomitant]
     Active Substance: AMLODIPINE BESYLATE\IRBESARTAN
     Dosage: UNK
  10. OXYCONTIN [Concomitant]
     Active Substance: OXYCODONE HYDROCHLORIDE
     Dosage: UNK
  11. OXYCODONE HYDROCHLORIDE [Concomitant]
     Active Substance: OXYCODONE HYDROCHLORIDE
     Dosage: UNK

REACTIONS (4)
  - Hepatic function abnormal [Recovered/Resolved]
  - Weight increased [Unknown]
  - Haemoglobin decreased [Unknown]
  - Blood calcium decreased [Unknown]

NARRATIVE: CASE EVENT DATE: 20201204
